FAERS Safety Report 8335848-4 (Version None)
Quarter: 2012Q2

REPORT INFORMATION
  Report Type: 
  Country: None (occurrence: None)
  Receive Date: 20120501
  Receipt Date: 20120501
  Transmission Date: 20120825
  Serious: No
  Sender: FDA-Public Use
  Company Number: None

PATIENT
  Sex: Male

DRUGS (3)
  1. VICTRELIS [Concomitant]
  2. RIBAVIRIN [Concomitant]
  3. PEGASYS [Suspect]
     Indication: HEPATITIS C
     Dosage: 180 MCG/ML ONCE/WK SQ
     Route: 058
     Dates: start: 20120113

REACTIONS (5)
  - BLOOD PRESSURE INCREASED [None]
  - DIZZINESS [None]
  - RENAL PAIN [None]
  - ANAEMIA [None]
  - MALAISE [None]
